FAERS Safety Report 8193655-X (Version None)
Quarter: 2012Q1

REPORT INFORMATION
  Report Type: 
  Country: None (occurrence: None)
  Receive Date: 20120308
  Receipt Date: 20120301
  Transmission Date: 20120608
  Serious: Yes (Hospitalization)
  Sender: FDA-Public Use
  Company Number: IE-JNJFOC-20120301283

PATIENT
  Sex: Male

DRUGS (8)
  1. PANTOPRAZOLE [Concomitant]
  2. METHOTREXATE [Concomitant]
  3. DELTACORTRIL [Concomitant]
  4. SIMPONI [Suspect]
     Indication: RHEUMATOID ARTHRITIS
     Route: 058
     Dates: start: 20101203
  5. DIFENAC [Concomitant]
  6. FOLIC ACID [Concomitant]
  7. NEBIVOLOL HCL [Concomitant]
  8. ISTIN [Concomitant]

REACTIONS (1)
  - LUNG INFECTION [None]
